FAERS Safety Report 8307996-6 (Version None)
Quarter: 2012Q2

REPORT INFORMATION
  Report Type: 
  Country: None (occurrence: None)
  Receive Date: 20120424
  Receipt Date: 20120418
  Transmission Date: 20120825
  Serious: Yes (Hospitalization)
  Sender: FDA-Public Use
  Company Number: FR-GLAXOSMITHKLINE-B0796318A

PATIENT
  Sex: Female

DRUGS (8)
  1. PROTELOS [Concomitant]
     Route: 065
  2. LYRICA [Concomitant]
     Route: 065
     Dates: end: 20120301
  3. CACIT D3 [Concomitant]
     Route: 065
  4. PREDNISONE TAB [Concomitant]
     Route: 065
  5. HYZAAR [Concomitant]
     Route: 065
     Dates: end: 20120301
  6. VALACYCLOVIR HYDROCHLORIDE [Suspect]
     Indication: HERPES ZOSTER
     Dosage: 1000MG THREE TIMES PER DAY
     Route: 048
     Dates: start: 20120201, end: 20120301
  7. ESCITALOPRAM [Concomitant]
     Route: 065
  8. OMIX [Concomitant]
     Route: 065

REACTIONS (4)
  - URAEMIC ENCEPHALOPATHY [None]
  - VIITH NERVE PARALYSIS [None]
  - CONFUSIONAL STATE [None]
  - RENAL FAILURE ACUTE [None]
